FAERS Safety Report 22074041 (Version 1)
Quarter: 2023Q1

REPORT INFORMATION
  Report Type: Spontaneous
  Country: US (occurrence: None)
  Receive Date: 20230307
  Receipt Date: 20230307
  Transmission Date: 20230418
  Serious: Yes (Other)
  Sender: FDA-Public Use
  Company Number: None

PATIENT
  Age: 46 Year
  Sex: Male
  Weight: 123.75 kg

DRUGS (14)
  1. GONADORELIN ACETATE [Suspect]
     Active Substance: GONADORELIN ACETATE
     Indication: Hypogonadism
     Dosage: OTHER QUANTITY : 1 SPRAY(S);?FREQUENCY : DAILY;?
     Route: 055
     Dates: start: 20220722, end: 20230307
  2. GONADORELIN ACETATE [Suspect]
     Active Substance: GONADORELIN ACETATE
     Indication: Prophylaxis
  3. LISINOPRIL [Concomitant]
     Active Substance: LISINOPRIL
  4. HYDROCHLOROTHIAZIDE [Concomitant]
     Active Substance: HYDROCHLOROTHIAZIDE
  5. TESTOSTERONE CYPIONATE [Concomitant]
     Active Substance: TESTOSTERONE CYPIONATE
  6. GONADORELIN ACETATE [Concomitant]
     Active Substance: GONADORELIN ACETATE
  7. FINASTERIDE [Concomitant]
     Active Substance: FINASTERIDE
  8. EMTRICITABINE [Concomitant]
     Active Substance: EMTRICITABINE
  9. TENOFOVIR DISOPROXIL FUMARATE [Concomitant]
     Active Substance: TENOFOVIR DISOPROXIL FUMARATE
  10. VITAMIN D3 [Concomitant]
     Active Substance: CHOLECALCIFEROL
  11. VITAMIN B12 [Concomitant]
     Active Substance: CYANOCOBALAMIN
  12. FISH OIL [Concomitant]
     Active Substance: FISH OIL
  13. Omega3 [Concomitant]
  14. OMEPRAZOLE [Concomitant]
     Active Substance: OMEPRAZOLE

REACTIONS (4)
  - Nasal inflammation [None]
  - COVID-19 [None]
  - Paranasal sinus discomfort [None]
  - Product quality issue [None]

NARRATIVE: CASE EVENT DATE: 20230307
